FAERS Safety Report 5696060-0 (Version None)
Quarter: 2008Q2

REPORT INFORMATION
  Report Type: 
  Country: None (occurrence: None)
  Receive Date: 20080407
  Receipt Date: 20080331
  Transmission Date: 20081010
  Serious: Yes (Hospitalization)
  Sender: FDA-Public Use
  Company Number: B0493795A

PATIENT
  Age: 34 Year
  Sex: Male

DRUGS (2)
  1. CLAMOXYL [Suspect]
     Indication: RHINITIS
     Dosage: 1TAB SINGLE DOSE
     Route: 048
     Dates: start: 20070920, end: 20070920
  2. IBUPROFEN [Suspect]
     Indication: RHINITIS
     Dosage: 1TAB SINGLE DOSE
     Route: 048
     Dates: start: 20070920, end: 20070920

REACTIONS (5)
  - ANAPHYLACTOID REACTION [None]
  - BRADYCARDIA [None]
  - HYPOTENSION [None]
  - TACHYPNOEA [None]
  - URTICARIA [None]
